FAERS Safety Report 6920606-5 (Version None)
Quarter: 2010Q3

REPORT INFORMATION
  Report Type: 
  Country: None (occurrence: None)
  Receive Date: 20100812
  Receipt Date: 20100730
  Transmission Date: 20110219
  Serious: Yes (Hospitalization, Other)
  Sender: FDA-Public Use
  Company Number: CH-PAR PHARMACEUTICAL, INC-2010SCPR001179

PATIENT

DRUGS (1)
  1. VERAPAMIL HCL ER [Suspect]
     Indication: MIGRAINE
     Dosage: 20 TABLETS OF 240 MG
     Route: 048

REACTIONS (14)
  - CARDIOGENIC SHOCK [None]
  - CARDIOTOXICITY [None]
  - DIZZINESS [None]
  - DRUG TOXICITY [None]
  - DYSPNOEA [None]
  - GRAND MAL CONVULSION [None]
  - ILEUS PARALYTIC [None]
  - INTENTIONAL OVERDOSE [None]
  - NAUSEA [None]
  - NON-CARDIOGENIC PULMONARY OEDEMA [None]
  - RENAL FAILURE ACUTE [None]
  - RESPIRATORY FAILURE [None]
  - SOMNOLENCE [None]
  - SUICIDE ATTEMPT [None]
